FAERS Safety Report 9689004 (Version 1)
Quarter: 2013Q4

REPORT INFORMATION
  Report Type: Spontaneous
  Country: BG (occurrence: BG)
  Receive Date: 20131114
  Receipt Date: 20131114
  Transmission Date: 20140711
  Serious: Yes (Hospitalization)
  Sender: FDA-Public Use
  Company Number: BG-JNJFOC-20131104194

PATIENT
  Age: 75 Year
  Sex: Female

DRUGS (4)
  1. SIMPONI [Suspect]
     Indication: RHEUMATOID ARTHRITIS
     Route: 058
     Dates: start: 20130918
  2. CIPROFLOXACIN [Suspect]
     Indication: PYREXIA
     Route: 065
  3. CEFTRIAXONE [Suspect]
     Indication: PYREXIA
     Route: 065
  4. OSSEOR [Concomitant]
     Indication: OSTEOPOROSIS
     Route: 048

REACTIONS (9)
  - Bronchitis chronic [Not Recovered/Not Resolved]
  - Hyperhidrosis [Not Recovered/Not Resolved]
  - Pyelonephritis chronic [Not Recovered/Not Resolved]
  - Palpitations [Not Recovered/Not Resolved]
  - Vomiting [Not Recovered/Not Resolved]
  - Gastritis [Not Recovered/Not Resolved]
  - Lupus-like syndrome [Not Recovered/Not Resolved]
  - Emphysema [Not Recovered/Not Resolved]
  - Intervertebral disc degeneration [Unknown]
